FAERS Safety Report 4603829-X (Version None)
Quarter: 2005Q1

REPORT INFORMATION
  Report Type: 
  Country: None (occurrence: None)
  Receive Date: 20050308
  Receipt Date: 20050228
  Transmission Date: 20050727
  Serious: Yes (Hospitalization)
  Sender: FDA-Public Use
  Company Number: 163-20785-05020215

PATIENT
  Age: 69 Year
  Sex: Male

DRUGS (6)
  1. THALOMID [Suspect]
     Indication: MULTIPLE MYELOMA
     Dosage: SEE IMAGE, ORAL
     Route: 048
     Dates: start: 20041215, end: 20050126
  2. THALOMID [Suspect]
     Indication: MULTIPLE MYELOMA
     Dosage: SEE IMAGE, ORAL
     Route: 048
     Dates: start: 20050202, end: 20050209
  3. THALOMID [Suspect]
     Indication: MULTIPLE MYELOMA
     Dosage: SEE IMAGE, ORAL
     Route: 048
     Dates: start: 20050210
  4. FLAGYL [Suspect]
  5. QUINOLONE ANTIBIOTICS (QUINOLONE ANTIBACTERIALS) [Suspect]
  6. TERAZOSIN (TERAZOSIN) [Concomitant]

REACTIONS (6)
  - BRONCHITIS [None]
  - JAW DISORDER [None]
  - PLATELET COUNT DECREASED [None]
  - PNEUMONIA [None]
  - SWELLING [None]
  - WHITE BLOOD CELL COUNT DECREASED [None]
